FAERS Safety Report 6956521-0 (Version None)
Quarter: 2010Q3

REPORT INFORMATION
  Report Type: 
  Country: None (occurrence: None)
  Receive Date: 20100830
  Receipt Date: 20100817
  Transmission Date: 20110219
  Serious: Yes (Hospitalization, Other)
  Sender: FDA-Public Use
  Company Number: US-ELI_LILLY_AND_COMPANY-US201007005302

PATIENT
  Sex: Female

DRUGS (5)
  1. FORTEO [Suspect]
     Indication: OSTEOPOROSIS
  2. MULTI-VITAMINS [Concomitant]
  3. ASPIRIN [Concomitant]
  4. CALCIUM 600 PLUS VITAMIN D [Concomitant]
  5. ACID REDUCER [Concomitant]

REACTIONS (2)
  - FALL [None]
  - FEMUR FRACTURE [None]
